APPROVED DRUG PRODUCT: ORTHO-NOVUM 10/11-21
Active Ingredient: ETHINYL ESTRADIOL; NORETHINDRONE
Strength: 0.035MG,0.035MG;0.5MG,1MG **Federal Register determination that product was not discontinued or withdrawn for safety or effectiveness reasons**
Dosage Form/Route: TABLET;ORAL-21
Application: N018354 | Product #001
Applicant: ORTHO MCNEIL JANSSEN PHARMACEUTICALS INC
Approved: Jan 11, 1982 | RLD: Yes | RS: No | Type: DISCN